FAERS Safety Report 16545689 (Version 1)
Quarter: 2019Q3

REPORT INFORMATION
  Report Type: Spontaneous
  Country: CY (occurrence: CY)
  Receive Date: 20190709
  Receipt Date: 20190709
  Transmission Date: 20191004
  Serious: Yes (Death, Hospitalization)
  Sender: FDA-Public Use
  Company Number: CY-MYLANLABS-2019M1063030

PATIENT
  Age: 76 Year
  Sex: Female

DRUGS (3)
  1. KISQALI [Suspect]
     Active Substance: RIBOCICLIB
     Indication: BREAST CANCER METASTATIC
     Dosage: 600 MG, QD
     Route: 048
     Dates: start: 20181214, end: 20181231
  2. LETROZOLE. [Suspect]
     Active Substance: LETROZOLE
     Indication: BREAST CANCER METASTATIC
     Dosage: 2.5 MG, QD
     Route: 048
     Dates: start: 20181214, end: 20181231
  3. ZOLEDRONIC ACID [Suspect]
     Active Substance: ZOLEDRONIC ACID
     Indication: BREAST CANCER METASTATIC
     Dosage: 4 MILLIGRAM, MONTHLY (4 MG, QMO)
     Route: 042
     Dates: start: 20180911

REACTIONS (4)
  - Fatigue [Fatal]
  - Hepatic enzyme increased [Unknown]
  - Stomatitis [Fatal]
  - Dysphagia [Unknown]

NARRATIVE: CASE EVENT DATE: 20181227
